FAERS Safety Report 15906142 (Version 2)
Quarter: 2019Q1

REPORT INFORMATION
  Report Type: Spontaneous
  Country: US (occurrence: US)
  Receive Date: 20190204
  Receipt Date: 20190218
  Transmission Date: 20190417
  Serious: Yes (Death, Hospitalization)
  Sender: FDA-Public Use
  Company Number: US-ITALFARMACO SPA-2062116

PATIENT
  Age: 75 Year
  Sex: Male

DRUGS (2)
  1. GLYCOPYRROLATE. [Suspect]
     Active Substance: GLYCOPYRROLATE
  2. TIGLUTIK [Suspect]
     Active Substance: RILUZOLE
     Route: 048
     Dates: start: 201812

REACTIONS (3)
  - Urinary tract infection [Not Recovered/Not Resolved]
  - Disease progression [Fatal]
  - Urinary retention [Not Recovered/Not Resolved]
